FAERS Safety Report 23157647 (Version 3)
Quarter: 2025Q2

REPORT INFORMATION
  Report Type: Spontaneous
  Country: US (occurrence: US)
  Receive Date: 20231108
  Receipt Date: 20250401
  Transmission Date: 20250717
  Serious: Yes (Disabling, Other)
  Sender: SPECGX
  Company Number: US-SPECGX-T202302051

PATIENT
  Sex: Male
  Weight: 100 kg

DRUGS (5)
  1. METHYLPHENIDATE HYDROCHLORIDE [Suspect]
     Active Substance: METHYLPHENIDATE HYDROCHLORIDE
     Indication: Attention deficit hyperactivity disorder
     Dosage: 40 MILLIGRAM, Q2H
     Route: 048
  2. METHYLPHENIDATE HYDROCHLORIDE [Suspect]
     Active Substance: METHYLPHENIDATE HYDROCHLORIDE
     Dosage: 120 MILLIGRAM, Q2H (TITRATED)
     Route: 065
  3. GABAPENTIN [Concomitant]
     Active Substance: GABAPENTIN
     Indication: Neuralgia
     Dosage: 600 MILLIGRAM, TID
     Route: 065
     Dates: start: 201907
  4. CARBAMAZEPINE [Concomitant]
     Active Substance: CARBAMAZEPINE
     Indication: Product used for unknown indication
     Dosage: 400 MILLIGRAM, QHS (200 MG 2 TABLETS AT NIGHT)
     Route: 065
  5. LOSARTAN [Concomitant]
     Active Substance: LOSARTAN
     Indication: Blood pressure abnormal
     Route: 065
     Dates: start: 2017

REACTIONS (15)
  - Imprisonment [Unknown]
  - Surgery [Unknown]
  - Gun shot wound [Unknown]
  - Adverse reaction [Unknown]
  - Blood pressure fluctuation [Recovering/Resolving]
  - Communication disorder [Unknown]
  - Asthenia [Unknown]
  - Insomnia [Unknown]
  - Blood pressure increased [Unknown]
  - Drug withdrawal syndrome [Unknown]
  - Product label issue [Unknown]
  - Social problem [Unknown]
  - Economic problem [Unknown]
  - Loss of personal independence in daily activities [Unknown]
  - Drug ineffective [Unknown]

NARRATIVE: CASE EVENT DATE: 20200101
